FAERS Safety Report 13195548 (Version 3)
Quarter: 2017Q1

REPORT INFORMATION
  Report Type: Spontaneous
  Country: SE (occurrence: SE)
  Receive Date: 20170208
  Receipt Date: 20170327
  Transmission Date: 20170428
  Serious: Yes (Other)
  Sender: FDA-Public Use
  Company Number: SE-BRISTOL-MYERS SQUIBB COMPANY-BMS-2017-007939

PATIENT
  Sex: Female

DRUGS (1)
  1. ORENCIA [Suspect]
     Active Substance: ABATACEPT
     Indication: PALINDROMIC RHEUMATISM
     Dosage: UNK
     Route: 065
     Dates: start: 201108, end: 20140216

REACTIONS (5)
  - Breast cancer [Unknown]
  - Contusion [Not Recovered/Not Resolved]
  - Product used for unknown indication [Unknown]
  - Cancer surgery [Unknown]
  - Joint swelling [Unknown]

NARRATIVE: CASE EVENT DATE: 20160119
